FAERS Safety Report 4821312-3 (Version None)
Quarter: 2005Q4

REPORT INFORMATION
  Report Type: 
  Country: None (occurrence: None)
  Receive Date: 20051107
  Receipt Date: 20050801
  Transmission Date: 20060501
  Serious: No
  Sender: FDA-Public Use
  Company Number: 2005S1005354

PATIENT
  Age: 52 Year
  Sex: Female
  Weight: 70.5 kg

DRUGS (6)
  1. AVANDAMET [Suspect]
     Dosage: 2MG PER DAY
     Route: 048
     Dates: start: 20040101
  2. SYNTHROID [Suspect]
     Indication: HYPOTHYROIDISM
     Dosage: 125MCG VARIABLE DOSE
     Route: 048
     Dates: start: 20020101, end: 20040101
  3. LIPITOR [Suspect]
     Dosage: 40MG PER DAY
     Route: 048
     Dates: start: 19950101
  4. TOPROL-XL [Suspect]
     Dosage: 25MG PER DAY
     Route: 048
     Dates: start: 20040101
  5. LEVOTHYROXINE SODIUM [Suspect]
     Indication: HYPOTHYROIDISM
     Dosage: 125MCG UNKNOWN
     Dates: start: 20040101
  6. NABUMETONE [Concomitant]
     Dosage: 750MG UNKNOWN
     Route: 065
     Dates: start: 20050601

REACTIONS (2)
  - DRUG INTERACTION [None]
  - FATIGUE [None]
